FAERS Safety Report 9423071 (Version 4)
Quarter: 2013Q4

REPORT INFORMATION
  Report Type: Report from Study
  Country: GB (occurrence: GB)
  Receive Date: 20130726
  Receipt Date: 20131001
  Transmission Date: 20140711
  Serious: Yes (Life-Threatening, Hospitalization)
  Sender: FDA-Public Use
  Company Number: GB-GLAXOSMITHKLINE-B0910175A

PATIENT
  Age: 60 Year
  Sex: Male

DRUGS (3)
  1. LAPATINIB [Suspect]
     Indication: ADENOCARCINOMA
     Dosage: 1250MG PER DAY
     Route: 048
     Dates: start: 20130417, end: 20130522
  2. OXALIPLATIN [Suspect]
     Indication: ADENOCARCINOMA
     Dosage: 260MG CYCLIC
     Route: 042
     Dates: start: 20130501
  3. CAPECITABINE [Suspect]
     Indication: ADENOCARCINOMA
     Dosage: 1650MG TWICE PER DAY
     Route: 048
     Dates: start: 20130501

REACTIONS (1)
  - Gastrointestinal anastomotic leak [Not Recovered/Not Resolved]
